FAERS Safety Report 19467064 (Version 1)
Quarter: 2021Q2

REPORT INFORMATION
  Report Type: Spontaneous
  Country: US (occurrence: US)
  Receive Date: 20210625
  Receipt Date: 20210625
  Transmission Date: 20210717
  Serious: Yes (Death)
  Sender: FDA-Public Use
  Company Number: None

PATIENT
  Age: 63 Year
  Sex: Female

DRUGS (10)
  1. ONDANSETRON 4MG TABLET [Concomitant]
  2. VENOFER 20MG/ML INJECTION [Concomitant]
  3. HYDROXYZINE 25MG TABLET [Concomitant]
  4. LOKELMA [Suspect]
     Active Substance: SODIUM ZIRCONIUM CYCLOSILICATE
     Indication: HYPERKALAEMIA
     Dosage: ?          OTHER FREQUENCY:ON NONDIALYSIS DAY;?
     Route: 048
     Dates: start: 20210401, end: 20210411
  5. MULTIVITAMIN TABLETS [Concomitant]
  6. LOSARTAN 25MG TABLET [Concomitant]
  7. MIRCERA 75MCG INJECTION [Concomitant]
  8. ASPIRIN 81MG [Concomitant]
     Active Substance: ASPIRIN
  9. TRIAMCINOLONE 0.1% CREAM [Concomitant]
     Active Substance: TRIAMCINOLONE ACETONIDE
  10. ATORVASTATIN 20MG TABLET [Concomitant]

REACTIONS (1)
  - Death [None]

NARRATIVE: CASE EVENT DATE: 20210411
